FAERS Safety Report 9325806 (Version 1)
Quarter: 2013Q2

REPORT INFORMATION
  Report Type: Spontaneous
  Country: GR (occurrence: GR)
  Receive Date: 20130604
  Receipt Date: 20130604
  Transmission Date: 20140414
  Serious: Yes (Other)
  Sender: FDA-Public Use
  Company Number: GR-MYLANLABS-2013S1011423

PATIENT
  Age: 72 Year
  Sex: Female

DRUGS (1)
  1. LETROZOLE [Suspect]
     Dosage: 2.5 MG/DAY
     Route: 048

REACTIONS (3)
  - Macular oedema [Recovering/Resolving]
  - Retinogram abnormal [Not Recovered/Not Resolved]
  - Retinal toxicity [Not Recovered/Not Resolved]
